FAERS Safety Report 12054243 (Version 5)
Quarter: 2016Q3

REPORT INFORMATION
  Report Type: Spontaneous
  Country: US (occurrence: US)
  Receive Date: 20160209
  Receipt Date: 20160728
  Transmission Date: 20161109
  Serious: Yes (Hospitalization)
  Sender: FDA-Public Use
  Company Number: US-HORIZON-ACT-0028-2016

PATIENT
  Age: 23 Year
  Sex: Male

DRUGS (7)
  1. HYDROCORTISONE. [Concomitant]
     Active Substance: HYDROCORTISONE
  2. ACTIMMUNE [Suspect]
     Active Substance: INTERFERON GAMMA-1B
     Indication: CHRONIC GRANULOMATOUS DISEASE
     Dosage: 70 ?G THREE TIMES WEEKLY
     Dates: start: 20120113
  3. CEFDINIR. [Concomitant]
     Active Substance: CEFDINIR
  4. POSACONAZOLE [Concomitant]
     Active Substance: POSACONAZOLE
  5. OMEPRAZOLE. [Concomitant]
     Active Substance: OMEPRAZOLE
  6. LEVOFLOXACIN. [Concomitant]
     Active Substance: LEVOFLOXACIN
  7. ITRACONAZOLE. [Concomitant]
     Active Substance: ITRACONAZOLE

REACTIONS (6)
  - Abscess [Recovered/Resolved]
  - Pyrexia [Unknown]
  - Lymphadenopathy [Recovered/Resolved]
  - Staphylococcal skin infection [Unknown]
  - Therapy cessation [Unknown]
  - Influenza like illness [Unknown]

NARRATIVE: CASE EVENT DATE: 2016
